FAERS Safety Report 24107372 (Version 1)
Quarter: 2024Q3

REPORT INFORMATION
  Report Type: Report from Study
  Country: US (occurrence: None)
  Receive Date: 20240718
  Receipt Date: 20240718
  Transmission Date: 20241017
  Serious: Yes (Other)
  Sender: ASTRAZENECA
  Company Number: 2020SE17454

PATIENT
  Sex: Female

DRUGS (3)
  1. LYNPARZA [Suspect]
     Active Substance: OLAPARIB
     Indication: Ovarian cancer
     Route: 048
  2. LYNPARZA [Suspect]
     Active Substance: OLAPARIB
     Indication: Ovarian cancer
     Dosage: 150.0MG UNKNOWN
     Route: 048
  3. LYNPARZA [Suspect]
     Active Substance: OLAPARIB
     Indication: Ovarian cancer
     Dosage: 100.0MG UNKNOWN
     Route: 048

REACTIONS (1)
  - Haematology test abnormal [Unknown]
